FAERS Safety Report 20957703 (Version 2)
Quarter: 2023Q2

REPORT INFORMATION
  Report Type: Spontaneous
  Country: US (occurrence: US)
  Receive Date: 20220614
  Receipt Date: 20230619
  Transmission Date: 20230722
  Serious: No
  Sender: FDA-Public Use
  Company Number: US-PFM-2022-02540

PATIENT
  Sex: Female
  Weight: 8.617 kg

DRUGS (1)
  1. HEMANGEOL [Suspect]
     Active Substance: PROPRANOLOL HYDROCHLORIDE
     Indication: Haemangioma
     Dosage: 3.4 ML, BID (2/DAY)
     Route: 048

REACTIONS (3)
  - Gastrointestinal viral infection [Unknown]
  - Decreased appetite [Unknown]
  - Sleep disorder [Unknown]
